FAERS Safety Report 4459251-2 (Version None)
Quarter: 2004Q3

REPORT INFORMATION
  Report Type: 
  Country: None (occurrence: None)
  Receive Date: 20040922
  Receipt Date: 20040922
  Transmission Date: 20050211
  Serious: Yes (Hospitalization)
  Sender: FDA-Public Use
  Company Number: None

PATIENT
  Age: 17 Year
  Sex: Female
  Weight: 59.5 kg

DRUGS (11)
  1. TRAMADOL  50 MG  UDL [Suspect]
     Indication: HEADACHE
     Dosage: 50 MG Q 4 H PRN ORAL
     Route: 048
     Dates: start: 20040912, end: 20040912
  2. TRAMADOL  50 MG  UDL [Suspect]
     Indication: PHARYNGOLARYNGEAL PAIN
     Dosage: 50 MG Q 4 H PRN ORAL
     Route: 048
     Dates: start: 20040912, end: 20040912
  3. ACETAMINOPHEN [Concomitant]
  4. AMOXICILLIN [Concomitant]
  5. CHLOROSEPTIC SPRAY [Concomitant]
  6. CLOTRIMAZOLE [Concomitant]
  7. DIPHENHYDRAMINE HCL [Concomitant]
  8. IBUPROFEN [Concomitant]
  9. RANITIDINE [Concomitant]
  10. NECON 7/7/7 [Concomitant]
  11. HEPARIN LOCK [Concomitant]

REACTIONS (3)
  - DIZZINESS [None]
  - HYPERVENTILATION [None]
  - PARALYSIS [None]
